FAERS Safety Report 6265223-8 (Version None)
Quarter: 2009Q3

REPORT INFORMATION
  Report Type: 
  Country: None (occurrence: None)
  Receive Date: 20090713
  Receipt Date: 20090630
  Transmission Date: 20100115
  Serious: Yes (Hospitalization)
  Sender: FDA-Public Use
  Company Number: US-ROCHE-634317

PATIENT
  Sex: Female
  Weight: 76.7 kg

DRUGS (4)
  1. CAPECITABINE [Suspect]
     Indication: COLON CANCER
     Dosage: 1500 MG AM, 1500 MG PM
     Route: 048
     Dates: start: 20081106, end: 20090610
  2. OXALIPLATIN [Suspect]
     Indication: COLON CANCER
     Route: 042
     Dates: start: 20090122, end: 20090507
  3. METOPROLOL TARTRATE [Concomitant]
  4. BEVACIZUMAB [Concomitant]
     Indication: COLON CANCER
     Route: 042
     Dates: start: 20081106, end: 20090509

REACTIONS (1)
  - FALL [None]
